FAERS Safety Report 17260033 (Version 1)
Quarter: 2020Q1

REPORT INFORMATION
  Report Type: Spontaneous
  Country: IT (occurrence: IT)
  Receive Date: 20200111
  Receipt Date: 20200111
  Transmission Date: 20200409
  Serious: Yes (Other)
  Sender: FDA-Public Use
  Company Number: IT-ACCORD-169442

PATIENT
  Age: 55 Year
  Sex: Male

DRUGS (2)
  1. ACCORD HEALTHCARE ITALY (CISPLATIN) [Suspect]
     Active Substance: CISPLATIN
     Indication: LUNG NEOPLASM
     Dosage: X06479
     Route: 042
     Dates: start: 20191224, end: 20191224
  2. PEMETREXED. [Concomitant]
     Active Substance: PEMETREXED
     Indication: LUNG NEOPLASM
     Route: 042
     Dates: start: 20191224, end: 20191224

REACTIONS (3)
  - Throat tightness [Recovered/Resolved]
  - Dermatitis exfoliative generalised [Recovered/Resolved]
  - Dyspnoea [Recovered/Resolved]

NARRATIVE: CASE EVENT DATE: 20191224
